FAERS Safety Report 16795621 (Version 1)
Quarter: 2019Q3

REPORT INFORMATION
  Report Type: Spontaneous
  Country: MX (occurrence: MX)
  Receive Date: 20190911
  Receipt Date: 20190911
  Transmission Date: 20191005
  Serious: Yes (Other)
  Sender: FDA-Public Use
  Company Number: MX-PFIZER INC-2019370271

PATIENT
  Age: 20 Year
  Sex: Female

DRUGS (12)
  1. MELPHALAN. [Concomitant]
     Active Substance: MELPHALAN
     Dosage: 100 MG/M2, CYCLIC (100 MG/M^2/DAY)
     Dates: start: 201804
  2. CYCLOPHOSPHAMIDE. [Concomitant]
     Active Substance: CYCLOPHOSPHAMIDE
     Dosage: 350 MG/M2, CYCLIC (350 MG/M^2/DAY)
     Dates: start: 201804
  3. CYTARABINE. [Suspect]
     Active Substance: CYTARABINE
     Indication: ACUTE MYELOID LEUKAEMIA REFRACTORY
     Dosage: 50 MG, CYCLIC (LOW DOSE 50MG/DAY)
     Route: 058
     Dates: start: 2018
  4. CYCLOPHOSPHAMIDE. [Concomitant]
     Active Substance: CYCLOPHOSPHAMIDE
     Dosage: UNK, CYCLIC (+3 AND +4 POST-TRANSPLANT)
     Dates: start: 201804
  5. MYCOPHENOLATE MOFETIL. [Concomitant]
     Active Substance: MYCOPHENOLATE MOFETIL
     Indication: PROPHYLAXIS AGAINST GRAFT VERSUS HOST DISEASE
     Dosage: UNK (ON +5 DAY)
     Dates: start: 201804
  6. LEVOFLOXACIN. [Concomitant]
     Active Substance: LEVOFLOXACIN
     Indication: ANTIBIOTIC PROPHYLAXIS
     Dosage: UNK
     Dates: start: 201804
  7. ACYCLOVIR [ACICLOVIR] [Concomitant]
     Active Substance: ACYCLOVIR
     Indication: ANTIBIOTIC PROPHYLAXIS
     Dosage: UNK
     Dates: start: 201804
  8. GRANULOCYTE COLONY STIMULATING FACTOR [Concomitant]
     Active Substance: GRANULOCYTE COLONY-STIMULATING FACTOR NOS
     Indication: PROPHYLAXIS
     Dosage: UNK
     Dates: start: 201801
  9. FLUDARABINE [Concomitant]
     Active Substance: FLUDARABINE PHOSPHATE
     Dosage: 25 MG/M2, CYCLIC (25 MG/M^2/DAY)
     Dates: start: 201804
  10. CYCLOSPORINE. [Concomitant]
     Active Substance: CYCLOSPORINE
     Indication: PROPHYLAXIS AGAINST GRAFT VERSUS HOST DISEASE
     Dosage: UNK (ON +5 DAY)
     Dates: start: 201804
  11. VENETOCLAX. [Suspect]
     Active Substance: VENETOCLAX
     Indication: ACUTE MYELOID LEUKAEMIA REFRACTORY
     Dosage: 400 MG, CYCLIC (LOWER DOSES OF 400 MG DAILY)
     Route: 048
     Dates: start: 2018
  12. FLUCONAZOLE. [Concomitant]
     Active Substance: FLUCONAZOLE
     Indication: ANTIBIOTIC PROPHYLAXIS
     Dosage: UNK
     Dates: start: 201804

REACTIONS (5)
  - Gastrointestinal disorder [Unknown]
  - Decreased appetite [Unknown]
  - Fatigue [Unknown]
  - Febrile neutropenia [Unknown]
  - Thrombocytopenia [Unknown]

NARRATIVE: CASE EVENT DATE: 2018
